FAERS Safety Report 16991000 (Version 2)
Quarter: 2020Q1

REPORT INFORMATION
  Report Type: Spontaneous
  Country: US (occurrence: US)
  Receive Date: 20191104
  Receipt Date: 20200113
  Transmission Date: 20200409
  Serious: No
  Sender: FDA-Public Use
  Company Number: US-SA-2019SA304965

PATIENT
  Age: 54 Year
  Sex: Female
  Weight: 74.83 kg

DRUGS (24)
  1. HYDROCODONE/ACETAMINOPHEN [Concomitant]
     Active Substance: ACETAMINOPHEN\HYDROCODONE
  2. NITRO BID [Concomitant]
  3. LO LOESTRIN FE [Concomitant]
     Active Substance: ETHINYL ESTRADIOL\NORETHINDRONE ACETATE
  4. ACIDOPHILUS [Concomitant]
     Active Substance: LACTOBACILLUS ACIDOPHILUS
  5. SPIRONOLACTONE. [Concomitant]
     Active Substance: SPIRONOLACTONE
  6. OPSUMIT [Concomitant]
     Active Substance: MACITENTAN
  7. FUROSEMIDE. [Concomitant]
     Active Substance: FUROSEMIDE
  8. PROAIR HFA [Concomitant]
     Active Substance: ALBUTEROL SULFATE
  9. KEVZARA [Suspect]
     Active Substance: SARILUMAB
     Indication: RHEUMATOID ARTHRITIS
     Dosage: 200 MG, QOW
     Route: 058
  10. ONE A DAY WOMEN^S [Concomitant]
     Active Substance: MINERALS\VITAMINS
  11. ALEVE [Concomitant]
     Active Substance: NAPROXEN SODIUM
  12. PREDNISONE. [Concomitant]
     Active Substance: PREDNISONE
  13. GLUCOSAMINE AND CHONDROITIN [Concomitant]
     Active Substance: CHONDROITIN SULFATE (BOVINE)\GLUCOSAMINE HYDROCHLORIDE
  14. METHOTREXATE. [Concomitant]
     Active Substance: METHOTREXATE
  15. SILDENAFIL CITRATE. [Concomitant]
     Active Substance: SILDENAFIL CITRATE
  16. BREO ELLIPTA [Concomitant]
     Active Substance: FLUTICASONE FUROATE\VILANTEROL TRIFENATATE
  17. NAPROXEN. [Concomitant]
     Active Substance: NAPROXEN
  18. OXYGEN. [Concomitant]
     Active Substance: OXYGEN
  19. PROCARDIA [Concomitant]
     Active Substance: NIFEDIPINE
  20. CRANBERRY [VACCINIUM MACROCARPON] [Concomitant]
  21. NIFEDIPINE. [Concomitant]
     Active Substance: NIFEDIPINE
  22. FLUTICASONE PROPIONATE. [Concomitant]
     Active Substance: FLUTICASONE PROPIONATE
  23. FOLIC ACID. [Concomitant]
     Active Substance: FOLIC ACID
  24. ASPIRIN [ACETYLSALICYLIC ACID] [Concomitant]
     Active Substance: ASPIRIN

REACTIONS (3)
  - Body temperature increased [Unknown]
  - Nasopharyngitis [Unknown]
  - Dehydration [Unknown]

NARRATIVE: CASE EVENT DATE: 20191022
